FAERS Safety Report 4668541-X (Version None)
Quarter: 2005Q2

REPORT INFORMATION
  Report Type: 
  Country: None (occurrence: None)
  Receive Date: 20050518
  Receipt Date: 20050429
  Transmission Date: 20051028
  Serious: Yes (Hospitalization)
  Sender: FDA-Public Use
  Company Number: B0379341A

PATIENT
  Age: 73 Year
  Sex: Female

DRUGS (13)
  1. AUGMENTIN [Suspect]
     Indication: LUNG DISORDER
     Dosage: 3 GRAM(S) / PER DAY / INTRAVENOUS
     Route: 042
     Dates: start: 20050212, end: 20050220
  2. OFLOXACIN [Suspect]
     Indication: LUNG DISORDER
     Dosage: INTRAVENOUS
     Route: 042
     Dates: start: 20050212, end: 20050220
  3. PRAVASTATIN SODIUM [Suspect]
     Indication: HYPERLIPIDAEMIA
     Dosage: 40 MG/PER DAY/ORAL
     Route: 048
     Dates: start: 20050113, end: 20050216
  4. OLANZAPINE [Concomitant]
  5. CLORAZEPATE DIPOTASSIUM [Concomitant]
  6. CLOMIPRAMINE HCL [Concomitant]
  7. TRIMETAZIDINE [Concomitant]
  8. NITROGLYCERIN [Concomitant]
  9. OXAZEPAM [Concomitant]
  10. CYAMEMAZINE [Concomitant]
  11. LYSINE ASPIRIN [Concomitant]
  12. ENOXAPARIN SODIUM [Concomitant]
  13. ALPROZALAM [Concomitant]

REACTIONS (6)
  - ALANINE AMINOTRANSFERASE INCREASED [None]
  - ASPARTATE AMINOTRANSFERASE INCREASED [None]
  - BLOOD ALKALINE PHOSPHATASE INCREASED [None]
  - GAMMA-GLUTAMYLTRANSFERASE INCREASED [None]
  - HYPOCHONDRIASIS [None]
  - MICROLITHIASIS [None]
